FAERS Safety Report 17529663 (Version 1)
Quarter: 2020Q1

REPORT INFORMATION
  Report Type: Spontaneous
  Country: DK (occurrence: DK)
  Receive Date: 20200311
  Receipt Date: 20200311
  Transmission Date: 20200409
  Serious: Yes (Hospitalization)
  Sender: FDA-Public Use
  Company Number: DK-MYLANLABS-2020M1025814

PATIENT
  Age: 16 Year
  Sex: Female
  Weight: 45.6 kg

DRUGS (1)
  1. QUETIAPINE. [Suspect]
     Active Substance: QUETIAPINE
     Indication: PSYCHOTIC DISORDER
     Dosage: UNK(STYRKE: VARIERENDE. DOSIS: VARIERENDE.)
     Route: 048
     Dates: start: 2018, end: 20200201

REACTIONS (2)
  - Torticollis [Recovering/Resolving]
  - Dystonia [Recovering/Resolving]

NARRATIVE: CASE EVENT DATE: 20200131
